FAERS Safety Report 20114189 (Version 2)
Quarter: 2021Q4

REPORT INFORMATION
  Report Type: Spontaneous
  Country: RU (occurrence: RU)
  Receive Date: 20211125
  Receipt Date: 20211207
  Transmission Date: 20220303
  Serious: Yes (Hospitalization, Other)
  Sender: FDA-Public Use
  Company Number: RU-TEVA-2021-RU-1979920

PATIENT
  Age: 12 Year
  Sex: Female

DRUGS (12)
  1. LEVOFLOXACIN [Suspect]
     Active Substance: LEVOFLOXACIN
     Indication: Tuberculosis
     Dosage: AMZELFX REGIMEN
     Route: 065
  2. LEVOFLOXACIN [Suspect]
     Active Substance: LEVOFLOXACIN
     Dosage: ZELFXETO REGIMEN
     Route: 065
  3. AMIKACIN [Suspect]
     Active Substance: AMIKACIN
     Indication: Tuberculosis
     Dosage: AMZELFX REGIMEN
     Route: 065
  4. AMIKACIN [Suspect]
     Active Substance: AMIKACIN
     Dosage: AMCSLZDBDQ REGIMEN
     Route: 065
  5. PYRAZINAMIDE [Suspect]
     Active Substance: PYRAZINAMIDE
     Indication: Tuberculosis
     Dosage: AMZELFX REGIMEN
     Route: 065
  6. PYRAZINAMIDE [Suspect]
     Active Substance: PYRAZINAMIDE
     Dosage: ZELFXETO REGIMEN
     Route: 065
  7. ETHAMBUTOL [Suspect]
     Active Substance: ETHAMBUTOL HYDROCHLORIDE
     Indication: Tuberculosis
     Dosage: AMZELFX REGIMEN
     Route: 065
  8. ETHAMBUTOL [Suspect]
     Active Substance: ETHAMBUTOL HYDROCHLORIDE
     Dosage: ZELFXETO REGIMEN
     Route: 065
  9. ETHIONAMIDE [Suspect]
     Active Substance: ETHIONAMIDE
     Indication: Tuberculosis
     Dosage: ZELFXETO REGIMEN
     Route: 065
  10. BEDAQUILINE [Suspect]
     Active Substance: BEDAQUILINE
     Indication: Pulmonary tuberculosis
     Dosage: AMCSLZDBDQ REGIMEN; THREE COURSES OF BEDAQUILINE DUE TO LIFESAVING CONSIDERATIONS
     Route: 065
  11. CYCLOSERINE [Concomitant]
     Active Substance: CYCLOSERINE
     Indication: Pulmonary tuberculosis
     Dosage: AMCSLZDBDQ REGIMEN
     Route: 065
  12. LINEZOLID [Concomitant]
     Active Substance: LINEZOLID
     Indication: Pulmonary tuberculosis
     Dosage: AMCSLZDBDQ REGIMEN
     Route: 065

REACTIONS (3)
  - Tuberculosis [Unknown]
  - Deafness neurosensory [Unknown]
  - Off label use [Unknown]
